FAERS Safety Report 5280355-9 (Version None)
Quarter: 2007Q1

REPORT INFORMATION
  Report Type: 
  Country: None (occurrence: None)
  Receive Date: 20070329
  Receipt Date: 20070319
  Transmission Date: 20070707
  Serious: Yes (Life-Threatening)
  Sender: FDA-Public Use
  Company Number: JP-BAYER-200611266BYL

PATIENT
  Sex: Female

DRUGS (3)
  1. ADALAT [Suspect]
     Indication: HYPERTENSION
     Dosage: TOTAL DAILY DOSE: 80 MG  UNIT DOSE: 20 MG
     Route: 048
  2. TICLOPIDINE HCL [Concomitant]
     Dosage: TOTAL DAILY DOSE: 200 MG  UNIT DOSE: 100 MG
     Route: 048
  3. BASEN OD [Concomitant]
     Dosage: TOTAL DAILY DOSE: 0.6 MG  UNIT DOSE: 0.2 MG
     Route: 049

REACTIONS (1)
  - MALIGNANT HYPERTENSION [None]
